FAERS Safety Report 20852417 (Version 1)
Quarter: 2022Q2

REPORT INFORMATION
  Report Type: Spontaneous
  Country: NZ (occurrence: NZ)
  Receive Date: 20220520
  Receipt Date: 20220520
  Transmission Date: 20220721
  Serious: Yes (Other)
  Sender: FDA-Public Use
  Company Number: NZ-GRANULES-NZ-2022GRALIT00120

PATIENT
  Sex: Male

DRUGS (1)
  1. ACETAMINOPHEN [Suspect]
     Active Substance: ACETAMINOPHEN
     Indication: Ductus arteriosus premature closure
     Route: 065

REACTIONS (2)
  - Acute hepatic failure [Recovered/Resolved]
  - Product use in unapproved indication [Unknown]
